FAERS Safety Report 7789938-5 (Version None)
Quarter: 2011Q3

REPORT INFORMATION
  Report Type: 
  Country: None (occurrence: None)
  Receive Date: 20110930
  Receipt Date: 20100812
  Transmission Date: 20111222
  Serious: No
  Sender: FDA-Public Use
  Company Number: US-ASTRAZENECA-2007UW27544

PATIENT
  Age: 72 Year
  Sex: Female

DRUGS (3)
  1. ARIMIDEX [Suspect]
     Indication: BREAST CANCER
     Route: 048
  2. FOSAMAX [Concomitant]
  3. ATENOLOL [Concomitant]

REACTIONS (8)
  - BONE LOSS [None]
  - HEPATIC ENZYME INCREASED [None]
  - ANXIETY [None]
  - PAIN [None]
  - HOT FLUSH [None]
  - ASTHENIA [None]
  - DISEASE PROGRESSION [None]
  - HAIR TEXTURE ABNORMAL [None]
